FAERS Safety Report 17443839 (Version 1)
Quarter: 2020Q1

REPORT INFORMATION
  Report Type: Spontaneous
  Country: US (occurrence: US)
  Receive Date: 20200220
  Receipt Date: 20200220
  Transmission Date: 20200409
  Serious: No
  Sender: FDA-Public Use
  Company Number: None

PATIENT
  Age: 44 Year
  Sex: Male
  Weight: 67.5 kg

DRUGS (11)
  1. ZYPREXA [Concomitant]
     Active Substance: OLANZAPINE
  2. METAMUCIL [Concomitant]
     Active Substance: PLANTAGO SEED
  3. KLONOPIN [Concomitant]
     Active Substance: CLONAZEPAM
  4. METOPROLOL. [Concomitant]
     Active Substance: METOPROLOL
  5. FLUOXETINE [Concomitant]
     Active Substance: FLUOXETINE HYDROCHLORIDE
  6. CLOZAPINE. [Concomitant]
     Active Substance: CLOZAPINE
  7. ROSUVASTATIN. [Concomitant]
     Active Substance: ROSUVASTATIN
  8. ASPIRIN. [Concomitant]
     Active Substance: ASPIRIN
  9. SPRYCEL [Suspect]
     Active Substance: DASATINIB
  10. PROBIOTIC [Concomitant]
     Active Substance: PROBIOTICS NOS
  11. TURMERIC [Concomitant]
     Active Substance: HERBALS\TURMERIC

REACTIONS (3)
  - Flatulence [None]
  - Eructation [None]
  - Regurgitation [None]

NARRATIVE: CASE EVENT DATE: 20200220
